FAERS Safety Report 17348092 (Version 1)
Quarter: 2020Q1

REPORT INFORMATION
  Report Type: Report from Study
  Country: US (occurrence: US)
  Receive Date: 20200129
  Receipt Date: 20200129
  Transmission Date: 20200409
  Serious: No
  Sender: FDA-Public Use
  Company Number: US-EXELIXIS-CABO-19023603

PATIENT
  Sex: Female

DRUGS (1)
  1. CABOMETYX [Suspect]
     Active Substance: CABOZANTINIB S-MALATE
     Indication: HEPATOCELLULAR CARCINOMA
     Dosage: 20 MG, QD (AM WITHOUT FOOD)
     Dates: start: 20190801, end: 20190910

REACTIONS (9)
  - Taste disorder [Unknown]
  - Hypertension [Unknown]
  - Peripheral swelling [Unknown]
  - Diarrhoea [Recovered/Resolved]
  - Adverse drug reaction [Unknown]
  - Erythema [Unknown]
  - Groin infection [Unknown]
  - Skin ulcer [Unknown]
  - Gingival pain [Recovered/Resolved]
